FAERS Safety Report 6613567-X (Version None)
Quarter: 2010Q1

REPORT INFORMATION
  Report Type: 
  Country: None (occurrence: None)
  Receive Date: 20100304
  Receipt Date: 20100223
  Transmission Date: 20100710
  Serious: Yes (Hospitalization)
  Sender: FDA-Public Use
  Company Number: JP-ROCHE-644399

PATIENT
  Age: 28 Year
  Sex: Female
  Weight: 51 kg

DRUGS (45)
  1. TOCILIZUMAB [Suspect]
     Indication: JUVENILE ARTHRITIS
     Route: 041
     Dates: start: 20080717, end: 20080922
  2. TOCILIZUMAB [Suspect]
     Route: 041
     Dates: start: 20081015, end: 20081110
  3. TOCILIZUMAB [Suspect]
     Route: 041
     Dates: start: 20081126, end: 20081218
  4. TOCILIZUMAB [Suspect]
     Route: 041
     Dates: start: 20090105, end: 20090706
  5. TOCILIZUMAB [Suspect]
     Route: 041
     Dates: start: 20090101
  6. PREDNISOLONE [Suspect]
     Indication: JUVENILE ARTHRITIS
     Dosage: DOSE FORM: PERORAL AGENT.
     Route: 048
     Dates: end: 20080417
  7. PREDNISOLONE [Suspect]
     Dosage: DOSE FORM: PERORAL AGENT.
     Route: 048
     Dates: start: 20080418, end: 20080727
  8. PREDNISOLONE [Suspect]
     Dosage: DOSE FORM: ORAL FORMULATION (NOT OTHERWISE SPECIFIED).
     Route: 048
     Dates: start: 20080728, end: 20080824
  9. PREDNISOLONE [Suspect]
     Dosage: DOSE FORM: PERORAL AGENT.
     Route: 048
     Dates: start: 20080825, end: 20080907
  10. PREDNISOLONE [Suspect]
     Dosage: DOSE FORM: PERORAL AGENT.
     Route: 048
     Dates: start: 20080908, end: 20080921
  11. PREDNISOLONE [Suspect]
     Dosage: DOSE FORM: PERORAL AGENT.
     Route: 048
     Dates: start: 20080922, end: 20081005
  12. PREDNISOLONE [Suspect]
     Dosage: DOSE FORM: PERORAL AGENT.
     Route: 048
     Dates: start: 20081006, end: 20081027
  13. PREDNISOLONE [Suspect]
     Dosage: DOSE FORM: PERORAL AGENT.
     Route: 048
     Dates: start: 20081028, end: 20081110
  14. PREDNISOLONE [Suspect]
     Route: 048
     Dates: start: 20081111, end: 20090709
  15. PREDNISOLONE [Suspect]
     Dosage: DOSE FORM: PERORAL AGENT.
     Route: 048
     Dates: start: 20090717, end: 20090724
  16. PREDNISOLONE [Suspect]
     Route: 048
     Dates: start: 20090725
  17. METHOTREXATE [Suspect]
     Indication: JUVENILE ARTHRITIS
     Route: 048
     Dates: end: 20090215
  18. METHOTREXATE [Suspect]
     Route: 048
     Dates: start: 20090216, end: 20090528
  19. METHOTREXATE [Suspect]
     Route: 048
     Dates: start: 20090529, end: 20090709
  20. IMURAN [Suspect]
     Indication: DRUG USE FOR UNKNOWN INDICATION
     Route: 048
     Dates: end: 20081125
  21. IMURAN [Suspect]
     Route: 048
     Dates: start: 20081126, end: 20090215
  22. IMURAN [Suspect]
     Route: 048
     Dates: start: 20090216, end: 20090709
  23. LOXONIN [Concomitant]
     Dosage: DOSE FORM: PERORAL AGENT .
     Route: 048
     Dates: end: 20090709
  24. BAKTAR [Concomitant]
     Route: 048
     Dates: end: 20090709
  25. LIPITOR [Concomitant]
     Route: 048
     Dates: end: 20090412
  26. ACTOS [Concomitant]
     Route: 048
     Dates: start: 20080703, end: 20090316
  27. FOLIAMIN [Concomitant]
     Dosage: DRUG FROM: PERORAL AGENT.
     Route: 048
     Dates: end: 20090709
  28. TAKEPRON [Concomitant]
     Route: 048
     Dates: end: 20090709
  29. TAKEPRON [Concomitant]
     Route: 048
     Dates: start: 20090717
  30. FOSAMAX [Concomitant]
     Dosage: DRUG REPORTED AS ALENDRONATE SODIUM HYDRATE.
     Route: 048
     Dates: end: 20090709
  31. FUNGIZONE [Concomitant]
     Route: 048
     Dates: end: 20090709
  32. FUNGIZONE [Concomitant]
     Route: 048
     Dates: start: 20090717
  33. GASTROM [Concomitant]
     Dosage: DRUG REPORTED AS ECABET SODIUM.
     Route: 048
     Dates: end: 20090709
  34. SAXIZON [Concomitant]
     Dosage: ROUTE: INTRAVENOUS (NOT OTHERWISE SPECIFIED)
     Route: 042
     Dates: start: 20090710, end: 20090710
  35. CIPROXAN [Concomitant]
     Dosage: ROUTE: INTRAVENOUS (NOR OTHERWISE SPECIFIED)
     Route: 042
     Dates: start: 20090710, end: 20090712
  36. CIPROXAN [Concomitant]
     Dosage: ROUTE: INTRAVENOUS (NOR OTHERWISE SPECIFIED)
     Route: 042
     Dates: start: 20090713, end: 20090713
  37. PRIMPERAN [Concomitant]
     Dosage: ROUTE: INTRAVENOUS (NOR OTHERWISE SPECIFIED)
     Route: 042
     Dates: start: 20090710, end: 20090710
  38. METILON [Concomitant]
     Dosage: ROUTE: INTRAVENOUS (NOR OTHERWISE SPECIFIED)
     Route: 042
     Dates: start: 20090710, end: 20090710
  39. VITAMEDIN [Concomitant]
     Dosage: ROUTE: INTRAVENOUS (NOR OTHERWISE SPECIFIED)
     Route: 042
     Dates: start: 20090710, end: 20090713
  40. PREDNISOLONE SODIUM SUCCINATE INJ [Concomitant]
     Dosage: ROUTE: INTRAVENOUS (NOR OTHERWISE SPECIFIED)
     Route: 042
     Dates: start: 20090711, end: 20090711
  41. PREDNISOLONE SODIUM SUCCINATE INJ [Concomitant]
     Route: 042
     Dates: start: 20090712, end: 20090713
  42. GASTER [Concomitant]
     Dosage: ROUTE: INTRAVENOUS (NOR OTHERWISE SPECIFIED)
     Route: 042
     Dates: start: 20090714, end: 20090716
  43. FOSMICIN S [Concomitant]
     Dosage: ROUTE: INTRAVENOUS (NOT OTHERWISE SPECIFIED)
     Route: 042
     Dates: start: 20090713, end: 20090713
  44. FOSMICIN S [Concomitant]
     Dosage: ROUTE: INTRAVENOUS (NOT OTHERWISE SPECIFIED)
     Route: 042
     Dates: start: 20090714, end: 20090715
  45. MAGNESIUM OXIDE [Concomitant]
     Route: 048
     Dates: start: 20090717

REACTIONS (6)
  - ARTHRALGIA [None]
  - BLOOD PRESSURE INCREASED [None]
  - BRONCHITIS [None]
  - HISTIOCYTOSIS HAEMATOPHAGIC [None]
  - LIVER DISORDER [None]
  - OEDEMA PERIPHERAL [None]
